FAERS Safety Report 20994925 (Version 1)
Quarter: 2022Q2

REPORT INFORMATION
  Report Type: Spontaneous
  Country: US (occurrence: US)
  Receive Date: 20220622
  Receipt Date: 20220622
  Transmission Date: 20220721
  Serious: No
  Sender: FDA-Public Use
  Company Number: US-BAYER-2022A084591

PATIENT
  Age: 78 Year
  Sex: Male

DRUGS (1)
  1. CLARITIN [Suspect]
     Active Substance: LORATADINE
     Indication: White blood cell disorder
     Route: 048

REACTIONS (2)
  - Product use in unapproved indication [Unknown]
  - Product packaging issue [Unknown]
